FAERS Safety Report 5128102-5 (Version None)
Quarter: 2006Q4

REPORT INFORMATION
  Report Type: 
  Country: None (occurrence: None)
  Receive Date: 20061011
  Receipt Date: 20060927
  Transmission Date: 20070319
  Serious: Yes (Other)
  Sender: FDA-Public Use
  Company Number: 230475

PATIENT
  Age: 37 Year
  Sex: Female
  Weight: 103.9 kg

DRUGS (1)
  1. XOLAIR [Suspect]
     Indication: ASTHMA
     Dosage: 225 MG, SUBCUTANEOUS
     Route: 058
     Dates: start: 20060518

REACTIONS (7)
  - ASTHMA [None]
  - BACK PAIN [None]
  - CHEST DISCOMFORT [None]
  - CONDITION AGGRAVATED [None]
  - DRUG INEFFECTIVE [None]
  - MUSCLE SPASMS [None]
  - PAIN IN EXTREMITY [None]
